FAERS Safety Report 18329928 (Version 1)
Quarter: 2020Q3

REPORT INFORMATION
  Report Type: Spontaneous
  Country: US (occurrence: US)
  Receive Date: 20200930
  Receipt Date: 20200930
  Transmission Date: 20201103
  Serious: No
  Sender: FDA-Public Use
  Company Number: US-INDIVIOR US-INDV-125820-2020

PATIENT
  Age: 37 Year
  Sex: Male
  Weight: 181.41 kg

DRUGS (6)
  1. SUBOXONE [Suspect]
     Active Substance: BUPRENORPHINE HYDROCHLORIDE\NALOXONE HYDROCHLORIDE
     Indication: DRUG DEPENDENCE
     Dosage: 8 MILLIGRAM, TID
     Route: 065
     Dates: start: 201901, end: 2020
  2. SUBLOCADE [Suspect]
     Active Substance: BUPRENORPHINE
     Dosage: 300 MILLIGRAM, QMO
     Route: 058
     Dates: start: 202008
  3. SUBLOCADE [Suspect]
     Active Substance: BUPRENORPHINE
     Indication: DRUG DEPENDENCE
     Dosage: 100 MILLIGRAM, QMO
     Route: 058
     Dates: start: 20200723, end: 202008
  4. CYMBALTA [Concomitant]
     Active Substance: DULOXETINE HYDROCHLORIDE
     Indication: PRODUCT USED FOR UNKNOWN INDICATION
     Dosage: UNK
     Route: 065
  5. SUBLOCADE [Suspect]
     Active Substance: BUPRENORPHINE
     Indication: DRUG DEPENDENCE
     Dosage: 300 MILLIGRAM, QMO
     Route: 058
     Dates: start: 20200627, end: 202007
  6. NEURONTIN [Concomitant]
     Active Substance: GABAPENTIN
     Indication: PRODUCT USED FOR UNKNOWN INDICATION
     Dosage: UNK
     Route: 065

REACTIONS (10)
  - Injection site erythema [Unknown]
  - Drug dependence [Recovered/Resolved]
  - Injection site pruritus [Unknown]
  - Inappropriate schedule of product administration [Recovered/Resolved]
  - Oedema peripheral [Recovered/Resolved]
  - Joint swelling [Not Recovered/Not Resolved]
  - Drug dependence [Not Recovered/Not Resolved]
  - Rash macular [Recovered/Resolved]
  - Injection site irritation [Unknown]
  - Drug withdrawal syndrome [Not Recovered/Not Resolved]

NARRATIVE: CASE EVENT DATE: 201901
